FAERS Safety Report 6450123-0 (Version None)
Quarter: 2009Q4

REPORT INFORMATION
  Report Type: 
  Country: None (occurrence: None)
  Receive Date: 20091123
  Receipt Date: 20091113
  Transmission Date: 20100525
  Serious: Yes (Hospitalization)
  Sender: FDA-Public Use
  Company Number: US-MYLANLABS-2009S1019790

PATIENT
  Sex: Male

DRUGS (1)
  1. DIVALPROEX SODIUM EXTENDED RELEASE [Suspect]
     Dates: start: 20090401, end: 20090810

REACTIONS (2)
  - CONVULSION [None]
  - SINUSITIS [None]
